FAERS Safety Report 5576253-3 (Version None)
Quarter: 2007Q4

REPORT INFORMATION
  Report Type: 
  Country: None (occurrence: None)
  Receive Date: 20071228
  Receipt Date: 20071217
  Transmission Date: 20080405
  Serious: Yes (Hospitalization, Other)
  Sender: FDA-Public Use
  Company Number: US-ELI_LILLY_AND_COMPANY-US200709006021

PATIENT
  Sex: Male

DRUGS (12)
  1. CYMBALTA [Suspect]
     Indication: DEPRESSION
     Dosage: 30 MG, DAILY (1/D)
     Dates: start: 20070315, end: 20070320
  2. CELEBREX [Concomitant]
     Indication: ARTHRITIS
     Dosage: 200 MG, DAILY (1/D)
  3. MULTI-VITAMIN [Concomitant]
  4. ANTIHYPERTENSIVES [Concomitant]
  5. MAVIK [Concomitant]
     Dosage: 6 MG, DAILY (1/D)
  6. TUMS [Concomitant]
  7. PANGESTYME [Concomitant]
  8. CREON [Concomitant]
     Indication: PANCREATIC DISORDER
     Dosage: 20 MG, 3/D
  9. OMEPRAZOLE [Concomitant]
     Indication: GASTROOESOPHAGEAL REFLUX DISEASE
     Dosage: 20 MG, DAILY (1/D)
  10. PROSCAR [Concomitant]
     Dosage: 5 MG, DAILY (1/D)
  11. ASPIRIN W/CODEINE [Concomitant]
  12. OXYCODONE HCL [Concomitant]
     Indication: PAIN

REACTIONS (23)
  - ACTIVITIES OF DAILY LIVING IMPAIRED [None]
  - ANAEMIA VITAMIN B12 DEFICIENCY [None]
  - ARTHRITIS [None]
  - ASTHENIA [None]
  - BALANCE DISORDER [None]
  - BLOOD BILIRUBIN INCREASED [None]
  - BLOOD CREATINE PHOSPHOKINASE [None]
  - COGNITIVE DISORDER [None]
  - CONTUSION [None]
  - DEHYDRATION [None]
  - DISORIENTATION [None]
  - FALL [None]
  - FATIGUE [None]
  - GAIT DISTURBANCE [None]
  - HAEMATURIA [None]
  - HUNGER [None]
  - HYPOCALCAEMIA [None]
  - LIVER FUNCTION TEST ABNORMAL [None]
  - LOSS OF CONSCIOUSNESS [None]
  - MYALGIA [None]
  - PLEURAL EFFUSION [None]
  - SPEECH DISORDER [None]
  - THIRST [None]
